FAERS Safety Report 10338572 (Version 2)
Quarter: 2014Q3

REPORT INFORMATION
  Report Type: Spontaneous
  Country: US (occurrence: US)
  Receive Date: 20140724
  Receipt Date: 20140724
  Transmission Date: 20150326
  Serious: No
  Sender: FDA-Public Use
  Company Number: US-UNITED THERAPEUTICS-UTC-046272

PATIENT
  Sex: Female
  Weight: 61.68 kg

DRUGS (2)
  1. COUMADIN [Concomitant]
     Active Substance: WARFARIN SODIUM
  2. REMODULIN [Suspect]
     Active Substance: TREPROSTINIL
     Dosage: 0.028 UG/KG/MIN
     Route: 058
     Dates: start: 20131219

REACTIONS (12)
  - Infusion site swelling [Unknown]
  - Infusion site discomfort [Unknown]
  - Abdominal pain upper [Unknown]
  - Infusion site erythema [Unknown]
  - Nausea [Unknown]
  - Diarrhoea [Unknown]
  - Pain in extremity [Unknown]
  - Arthralgia [Unknown]
  - Infusion site pain [Unknown]
  - Oedema [Unknown]
  - Infusion site infection [Unknown]
  - Muscle spasms [Unknown]
